FAERS Safety Report 7394026-6 (Version None)
Quarter: 2011Q2

REPORT INFORMATION
  Report Type: 
  Country: None (occurrence: None)
  Receive Date: 20110405
  Receipt Date: 20110328
  Transmission Date: 20111010
  Serious: Yes (Death, Other)
  Sender: FDA-Public Use
  Company Number: JP-JNJFOC-20070703072

PATIENT
  Sex: Male
  Weight: 53 kg

DRUGS (35)
  1. VELCADE [Suspect]
     Route: 042
  2. FLOMAX [Concomitant]
     Indication: PNEUMONIA BACTERIAL
     Route: 048
  3. ROCEPHIN [Concomitant]
     Indication: PNEUMONIA BACTERIAL
     Route: 042
  4. GLUCONSAN K [Concomitant]
     Route: 048
  5. ISOTONIC SODIUM CHLORIDE [Concomitant]
     Indication: INAPPROPRIATE ANTIDIURETIC HORMONE SECRETION
     Route: 042
  6. DEXAMETHASONE [Suspect]
     Route: 042
  7. ZOMETA [Concomitant]
     Route: 042
  8. ROCEPHIN [Concomitant]
     Route: 042
  9. PREDNISOLONE [Concomitant]
     Indication: INTERSTITIAL LUNG DISEASE
     Route: 042
  10. VELCADE [Suspect]
     Route: 042
  11. VELCADE [Suspect]
     Route: 042
  12. DEXAMETHASONE [Suspect]
     Route: 042
  13. DEXAMETHASONE [Suspect]
     Route: 042
  14. BAKTAR [Suspect]
     Indication: PROPHYLAXIS
     Route: 048
  15. AMARYL [Concomitant]
     Indication: DIABETES MELLITUS
     Route: 048
  16. ASPARA POTASSIUM [Concomitant]
     Route: 042
  17. VOGLIBOSE [Concomitant]
     Indication: DIABETES MELLITUS
     Route: 048
  18. ROCEPHIN [Concomitant]
     Route: 042
  19. VELCADE [Suspect]
     Route: 042
  20. MEIACT [Suspect]
     Indication: PROPHYLAXIS
     Route: 048
  21. LASIX [Concomitant]
     Indication: INAPPROPRIATE ANTIDIURETIC HORMONE SECRETION
     Route: 042
  22. DEXAMETHASONE [Suspect]
     Route: 042
  23. ZOMETA [Concomitant]
     Route: 042
  24. ITRIZOLE [Suspect]
     Indication: PNEUMONIA BACTERIAL
     Route: 048
  25. VELCADE [Suspect]
     Indication: MULTIPLE MYELOMA
     Route: 042
  26. AMLODIN [Concomitant]
     Indication: HYPERTENSION
     Route: 048
  27. HARNAL D [Concomitant]
     Indication: DIABETIC NEPHROPATHY
     Route: 048
  28. ROCEPHIN [Concomitant]
     Indication: INTERSTITIAL LUNG DISEASE
     Route: 042
  29. SOLACET F [Concomitant]
     Indication: INAPPROPRIATE ANTIDIURETIC HORMONE SECRETION
     Route: 042
  30. SOLACET F [Concomitant]
     Route: 042
  31. VELCADE [Suspect]
     Route: 042
  32. DEXAMETHASONE [Suspect]
     Indication: MULTIPLE MYELOMA
     Route: 042
  33. DEXAMETHASONE [Suspect]
     Route: 042
  34. PARIET [Concomitant]
     Indication: PROPHYLAXIS
     Route: 048
  35. ASPARA POTASSIUM [Concomitant]
     Route: 042

REACTIONS (6)
  - INAPPROPRIATE ANTIDIURETIC HORMONE SECRETION [None]
  - MULTIPLE MYELOMA [None]
  - INTERSTITIAL LUNG DISEASE [None]
  - ORTHOSTATIC HYPOTENSION [None]
  - PLATELET COUNT DECREASED [None]
  - WHITE BLOOD CELL COUNT INCREASED [None]
